FAERS Safety Report 25510006 (Version 2)
Quarter: 2025Q3

REPORT INFORMATION
  Report Type: Spontaneous
  Country: EU (occurrence: EU)
  Receive Date: 20250703
  Receipt Date: 20250728
  Transmission Date: 20251021
  Serious: Yes (Other)
  Sender: ALNYLAM PHARMACEUTICALS
  Company Number: EU-ALNYLAM PHARMACEUTICALS, INC.-ALN-2025-004035

PATIENT

DRUGS (2)
  1. OXLUMO [Suspect]
     Active Substance: LUMASIRAN
     Indication: Primary hyperoxaluria
     Dosage: 6 MILLIGRAM/KILOGRAM, MONTHLY
     Route: 058
     Dates: start: 202010, end: 202010
  2. OXLUMO [Suspect]
     Active Substance: LUMASIRAN
     Route: 058
     Dates: start: 202110, end: 202110

REACTIONS (2)
  - Hyperoxalaemia [Recovered/Resolved]
  - Off label use [Unknown]

NARRATIVE: CASE EVENT DATE: 20200101
